FAERS Safety Report 14745323 (Version 2)
Quarter: 2018Q2

REPORT INFORMATION
  Report Type: Spontaneous
  Country: US (occurrence: US)
  Receive Date: 20180411
  Receipt Date: 20180509
  Transmission Date: 20180711
  Serious: Yes (Hospitalization)
  Sender: FDA-Public Use
  Company Number: US-ENDO PHARMACEUTICALS INC-2018-026299

PATIENT
  Age: 55 Year
  Sex: Male
  Weight: 113.38 kg

DRUGS (5)
  1. TESTOPEL [Suspect]
     Active Substance: TESTOSTERONE
     Dosage: 750 MG, UNKNOWN
     Route: 058
  2. TESTOPEL [Suspect]
     Active Substance: TESTOSTERONE
     Dosage: 600 MG, UNKNOWN
     Route: 058
  3. TESTOPEL [Suspect]
     Active Substance: TESTOSTERONE
     Indication: BLOOD TESTOSTERONE DECREASED
     Dosage: 900 MG, EVERY 3 MONTHS
     Route: 058
     Dates: start: 2017
  4. TESTOPEL [Suspect]
     Active Substance: TESTOSTERONE
     Dosage: 900 MG, EVERY 3 MONTHS
     Route: 058
     Dates: start: 201803
  5. TESTOPEL [Suspect]
     Active Substance: TESTOSTERONE
     Dosage: 450 MG, UNKNOWN
     Route: 058

REACTIONS (21)
  - Type 2 diabetes mellitus [Not Recovered/Not Resolved]
  - Testis discomfort [Unknown]
  - Headache [Recovered/Resolved]
  - Blood pressure increased [Unknown]
  - Memory impairment [Unknown]
  - Nasopharyngitis [Unknown]
  - Sinus disorder [Unknown]
  - Pyrexia [Unknown]
  - Prescribed overdose [Not Recovered/Not Resolved]
  - Testicular atrophy [Unknown]
  - Hypertension [Not Recovered/Not Resolved]
  - Respiratory tract congestion [Unknown]
  - Irritability [Unknown]
  - Acne [Unknown]
  - Drug effect decreased [Unknown]
  - Muscle atrophy [Unknown]
  - Implant site warmth [Not Recovered/Not Resolved]
  - Blood testosterone increased [Unknown]
  - Cough [Unknown]
  - Abdominal pain [Unknown]
  - Blood testosterone decreased [Unknown]

NARRATIVE: CASE EVENT DATE: 2017
